FAERS Safety Report 24210734 (Version 1)
Quarter: 2024Q3

REPORT INFORMATION
  Report Type: Spontaneous
  Country: US (occurrence: None)
  Receive Date: 20240813
  Receipt Date: 20240813
  Transmission Date: 20241017
  Serious: Yes (Life-Threatening, Hospitalization)
  Sender: Public
  Company Number: None

PATIENT
  Age: 61 Year
  Sex: Female
  Weight: 84.6 kg

DRUGS (4)
  1. SEMAGLUTIDE [Suspect]
     Active Substance: SEMAGLUTIDE
     Indication: Product used for unknown indication
     Dates: start: 20240509, end: 20240601
  2. LEVOTHYROXINE [Concomitant]
  3. FLUOXETINE [Concomitant]
  4. METFORMIN [Concomitant]

REACTIONS (7)
  - Product storage error [None]
  - Feeling abnormal [None]
  - Vomiting [None]
  - Diarrhoea [None]
  - Pyrexia [None]
  - Dyspnoea [None]
  - Palpitations [None]

NARRATIVE: CASE EVENT DATE: 20240530
